FAERS Safety Report 23772437 (Version 3)
Quarter: 2024Q2

REPORT INFORMATION
  Report Type: Spontaneous
  Country: US (occurrence: US)
  Receive Date: 20240423
  Receipt Date: 20240508
  Transmission Date: 20240716
  Serious: Yes (Other)
  Sender: FDA-Public Use
  Company Number: US-SANDOZ-SDZ2024US041016

PATIENT
  Sex: Male

DRUGS (7)
  1. AZITHROMYCIN [Suspect]
     Active Substance: AZITHROMYCIN
     Indication: Product used for unknown indication
     Route: 048
  2. CEFOXITIN [Suspect]
     Active Substance: CEFOXITIN SODIUM
     Indication: Product used for unknown indication
     Route: 042
  3. TIGECYCLINE [Suspect]
     Active Substance: TIGECYCLINE
     Indication: Product used for unknown indication
     Route: 042
  4. AVELOX [Concomitant]
     Active Substance: MOXIFLOXACIN HYDROCHLORIDE
     Indication: Product used for unknown indication
     Dosage: 400 MG, TAKE I TABLET (400 MG TOTAL) BY MOUTH DAILY.
     Route: 048
     Dates: start: 20230411, end: 20230710
  5. CIPRO [Concomitant]
     Active Substance: CIPROFLOXACIN\CIPROFLOXACIN HYDROCHLORIDE
     Indication: Product used for unknown indication
     Dosage: 750 MG, TAKE I TABLET (750 MG TOTAL) BY MOUTH 2 (TWO) TIMES A DAY.
     Route: 048
     Dates: start: 20230411, end: 20230710
  6. NUZYRA [Concomitant]
     Active Substance: OMADACYCLINE
     Indication: Product used for unknown indication
     Dosage: TAKE 2 TABLETS (300 MG TOTAL) BY MOUTH DAILY
     Route: 048
     Dates: start: 20230313, end: 20230909
  7. NUZYRA [Concomitant]
     Active Substance: OMADACYCLINE
     Dosage: TAKE 2 TABLETS (300 MG TOTAL) BY MOUTH DAILY
     Route: 048
     Dates: start: 20230325, end: 20230623

REACTIONS (3)
  - Mycobacterium abscessus infection [Unknown]
  - Incision site erythema [Not Recovered/Not Resolved]
  - Joint swelling [Not Recovered/Not Resolved]

NARRATIVE: CASE EVENT DATE: 20240301
